FAERS Safety Report 23576670 (Version 2)
Quarter: 2024Q1

REPORT INFORMATION
  Report Type: Report from Study
  Country: EG (occurrence: EG)
  Receive Date: 20240228
  Receipt Date: 20240307
  Transmission Date: 20240410
  Serious: Yes (Other)
  Sender: FDA-Public Use
  Company Number: EG-SANDOZ-SDZ2024EG020026

PATIENT
  Age: 12 Year
  Sex: Female
  Weight: 50 kg

DRUGS (1)
  1. OMNITROPE [Suspect]
     Active Substance: SOMATROPIN
     Indication: Short stature
     Dosage: 1 INCREASED TO 1.6 MG/ DAY ( SOLUTION FOR INJECTION )
     Route: 058
     Dates: start: 20220710

REACTIONS (9)
  - Growth retardation [Not Recovered/Not Resolved]
  - Injection site pain [Recovered/Resolved]
  - Medication error [Unknown]
  - Wrong technique in product usage process [Unknown]
  - Off label use [Unknown]
  - Device breakage [Unknown]
  - Device leakage [Unknown]
  - Product quality issue [Unknown]
  - Product dose omission issue [Unknown]

NARRATIVE: CASE EVENT DATE: 20220710
